FAERS Safety Report 9159927 (Version 2)
Quarter: 2013Q2

REPORT INFORMATION
  Report Type: Spontaneous
  Country: JP (occurrence: JP)
  Receive Date: 20130313
  Receipt Date: 20130408
  Transmission Date: 20140414
  Serious: Yes (Other)
  Sender: FDA-Public Use
  Company Number: JP-PFIZER INC-2013082711

PATIENT
  Age: 76 Year
  Sex: Female
  Weight: 49.3 kg

DRUGS (12)
  1. INLYTA [Suspect]
     Indication: RENAL CANCER METASTATIC
     Dosage: 5 MG, 2X/DAY
     Route: 048
     Dates: start: 20130109
  2. MUCOSTA [Concomitant]
     Dosage: 100 MG, 3X/DAY
  3. DONASHIN [Concomitant]
     Dosage: 2X/DAY (0-3 MG/DAY)
  4. ASCORBIC ACID [Concomitant]
     Dosage: 100 MG, UNK
     Route: 042
  5. WAKADENIN [Concomitant]
     Dosage: 10 MG, UNK
     Route: 042
  6. PYDOXAL [Concomitant]
     Dosage: 10 MG, UNK
     Route: 042
  7. ETICALM [Concomitant]
     Dosage: 0.5 MG, 1X/DAY
  8. PLATIBIT [Concomitant]
     Dosage: 0.5 MG, 1X/DAY
  9. PENCLUSIN [Concomitant]
     Dosage: 2 DF (TABLETS), 1X/DAY
  10. RABEPRAZOLE SODIUM [Concomitant]
     Dosage: 10 MG, 1X/DAY
  11. BUSCOPAN [Concomitant]
     Dosage: 60 MG, 1X/DAY
  12. EXCELASE [Concomitant]
     Dosage: 2 DF, 3X/DAY

REACTIONS (5)
  - Angina pectoris [Recovering/Resolving]
  - Angina pectoris [Recovering/Resolving]
  - Angina pectoris [Recovering/Resolving]
  - Hypertension [Recovered/Resolved]
  - Diarrhoea [Recovered/Resolved]
